FAERS Safety Report 6150224-0 (Version None)
Quarter: 2009Q2

REPORT INFORMATION
  Report Type: 
  Country: None (occurrence: None)
  Receive Date: 20090407
  Receipt Date: 20090407
  Transmission Date: 20091009
  Serious: Yes (Hospitalization, Disabling, Other)
  Sender: FDA-Public Use
  Company Number: None

PATIENT
  Age: 35 Year
  Sex: Female
  Weight: 54.4316 kg

DRUGS (1)
  1. HEPARIN SODIUM [Suspect]
     Indication: ABORTION SPONTANEOUS
     Dosage: 5,000 UNITS (.25 ML) TWICE A DAY INJECTIONS
     Dates: start: 20081029, end: 20081119

REACTIONS (2)
  - HEPATIC ENZYME INCREASED [None]
  - HYPOACUSIS [None]
